FAERS Safety Report 19689190 (Version 1)
Quarter: 2021Q3

REPORT INFORMATION
  Report Type: Report from Study
  Country: None (occurrence: RO)
  Receive Date: 20210812
  Receipt Date: 20210812
  Transmission Date: 20211014
  Serious: Yes (Death, Other)
  Sender: FDA-Public Use
  Company Number: RO-ABBVIE-21K-135-4034112-00

PATIENT
  Age: 72 Year
  Sex: Male

DRUGS (2)
  1. VIEKIRAX [Suspect]
     Active Substance: OMBITASVIR\PARITAPREVIR\RITONAVIR
     Indication: HEPATITIS C
     Route: 048
     Dates: start: 20210617, end: 20210807
  2. EXVIERA [Suspect]
     Active Substance: DASABUVIR
     Indication: HEPATIC CIRRHOSIS
     Route: 048
     Dates: start: 20210617, end: 20210807

REACTIONS (18)
  - Thrombocytopenia [Fatal]
  - Ischaemic stroke [Fatal]
  - General physical condition abnormal [Fatal]
  - Toxic encephalopathy [Fatal]
  - Staphylococcal sepsis [Fatal]
  - Somnolence [Fatal]
  - Hepatosplenomegaly [Fatal]
  - Blood glucose increased [Fatal]
  - Cholestasis [Fatal]
  - Cardio-respiratory arrest [Fatal]
  - Asthenia [Fatal]
  - Pyrexia [Fatal]
  - Leukocytosis [Fatal]
  - Liver disorder [Fatal]
  - Multiple organ dysfunction syndrome [Fatal]
  - Metabolic acidosis [Fatal]
  - Inflammation [Fatal]
  - Confusional state [Fatal]

NARRATIVE: CASE EVENT DATE: 2021
